FAERS Safety Report 9467212 (Version 3)
Quarter: 2014Q1

REPORT INFORMATION
  Report Type: Spontaneous
  Country: US (occurrence: US)
  Receive Date: 20130821
  Receipt Date: 20140205
  Transmission Date: 20141002
  Serious: Yes (Other)
  Sender: FDA-Public Use
  Company Number: US-B.I. PHARMACEUTICALS,INC./RIDGEFIELD-2013-BI-24915BP

PATIENT
  Age: 68 Year
  Sex: Female
  Weight: 110 kg

DRUGS (7)
  1. COMBIVENT [Suspect]
     Indication: CHRONIC OBSTRUCTIVE PULMONARY DISEASE
     Dosage: STRENGTH: 20 MCG / 100 MCG; DAILY DOSE: 160MCG/800MCG
     Route: 055
     Dates: start: 20130726
  2. COMBIVENT [Suspect]
     Dosage: DAILY DOSE: 2 PUFFS
     Route: 055
     Dates: start: 20130726
  3. ADVAIR [Concomitant]
     Indication: CHRONIC OBSTRUCTIVE PULMONARY DISEASE
     Dosage: STRENGTH: 500/50; DAILY DOSE: 1000/100
     Route: 055
  4. VERAPAMIL [Concomitant]
     Indication: HYPERTENSION
     Dosage: 180 MG
     Route: 048
  5. SIMVASTATIN [Concomitant]
     Indication: BLOOD CHOLESTEROL INCREASED
     Dosage: 40 MG
     Route: 048
  6. OMEPRAZOLE [Concomitant]
     Indication: GASTROOESOPHAGEAL REFLUX DISEASE
     Dosage: 960 MG
     Route: 048
  7. OMEPRAZOLE [Concomitant]
     Indication: EAGLE BARRETT SYNDROME

REACTIONS (4)
  - Small cell lung cancer [Unknown]
  - Bronchitis [Unknown]
  - Overdose [Not Recovered/Not Resolved]
  - Product quality issue [Unknown]
